FAERS Safety Report 25019066 (Version 3)
Quarter: 2025Q1

REPORT INFORMATION
  Report Type: Spontaneous
  Country: US (occurrence: US)
  Receive Date: 20250227
  Receipt Date: 20250310
  Transmission Date: 20250409
  Serious: Yes (Other)
  Sender: GLAXOSMITHKLINE
  Company Number: US-GLAXOSMITHKLINE INC-US2025022434

PATIENT

DRUGS (2)
  1. BENLYSTA [Suspect]
     Active Substance: BELIMUMAB
     Indication: Cutaneous sarcoidosis
     Route: 058
  2. BENLYSTA [Suspect]
     Active Substance: BELIMUMAB
     Indication: Systemic lupus erythematosus

REACTIONS (4)
  - Autoimmune disorder [Unknown]
  - Adverse reaction [Unknown]
  - Product dose omission issue [Unknown]
  - Product use in unapproved indication [Unknown]

NARRATIVE: CASE EVENT DATE: 20250201
